FAERS Safety Report 8852683 (Version 1)
Quarter: 2012Q4

REPORT INFORMATION
  Report Type: 
  Country: US (occurrence: US)
  Receive Date: 20121022
  Receipt Date: 20121022
  Transmission Date: 20130627
  Serious: No
  Sender: FDA-Public Use
  Company Number: US-ASTRAZENECA-2011SE19377

PATIENT
  Age: 76 Year
  Sex: Female
  Weight: 80.7 kg

DRUGS (4)
  1. NEXIUM [Suspect]
     Dosage: 2 PILLS PER DAY
     Route: 048
  2. NEXIUM [Suspect]
     Dosage: 1 PILL PER DAY
     Route: 048
  3. PRILOSEC [Suspect]
     Indication: GASTROOESOPHAGEAL REFLUX DISEASE
     Route: 048
     Dates: start: 2006
  4. CRESTOR [Suspect]
     Route: 048

REACTIONS (4)
  - Gastrooesophageal reflux disease [Unknown]
  - Cough [Unknown]
  - Intentional drug misuse [Unknown]
  - Drug ineffective [Unknown]
